FAERS Safety Report 9793464 (Version 3)
Quarter: 2014Q1

REPORT INFORMATION
  Report Type: Report from Study
  Country: US (occurrence: US)
  Receive Date: 20140102
  Receipt Date: 20140122
  Transmission Date: 20141002
  Serious: Yes (Other)
  Sender: FDA-Public Use
  Company Number: US-ABBVIE-13P-163-1183893-00

PATIENT
  Age: 71 Year
  Sex: Female
  Weight: 73.09 kg

DRUGS (1)
  1. HUMIRA [Suspect]
     Indication: RHEUMATOID ARTHRITIS
     Dates: start: 2013

REACTIONS (4)
  - Lymph node haemorrhage [Not Recovered/Not Resolved]
  - Mass [Not Recovered/Not Resolved]
  - Pharyngeal mass [Not Recovered/Not Resolved]
  - Thrombocytopenia [Unknown]
